FAERS Safety Report 17770554 (Version 1)
Quarter: 2020Q2

REPORT INFORMATION
  Report Type: Spontaneous
  Country: US (occurrence: US)
  Receive Date: 20200512
  Receipt Date: 20200512
  Transmission Date: 20200714
  Serious: Yes (Life-Threatening, Other)
  Sender: FDA-Public Use
  Company Number: None

PATIENT
  Age: 62 Year
  Sex: Male
  Weight: 108.45 kg

DRUGS (1)
  1. LIPOSOMAL AMPHO-B [Suspect]
     Active Substance: AMPHOTERICIN B
     Indication: FUNGAL ABSCESS CENTRAL NERVOUS SYSTEM
     Route: 042
     Dates: start: 20200510, end: 20200511

REACTIONS (2)
  - Ventricular tachycardia [None]
  - Ventricular extrasystoles [None]

NARRATIVE: CASE EVENT DATE: 20200510
